FAERS Safety Report 12449403 (Version 2)
Quarter: 2016Q2

REPORT INFORMATION
  Report Type: Spontaneous
  Country: CH (occurrence: CH)
  Receive Date: 20160608
  Receipt Date: 20160623
  Transmission Date: 20160815
  Serious: Yes (Hospitalization, Other)
  Sender: FDA-Public Use
  Company Number: CH-AMGEN-CHESP2016070802

PATIENT
  Age: 59 Year
  Sex: Male
  Weight: 99.5 kg

DRUGS (7)
  1. VALTREX [Concomitant]
     Active Substance: VALACYCLOVIR HYDROCHLORIDE
     Dosage: UNK
     Route: 048
  2. ZYLORIC [Concomitant]
     Active Substance: ALLOPURINOL
     Dosage: UNK
     Route: 048
  3. ASPIRIN CARDIO [Concomitant]
     Active Substance: ASPIRIN
     Dosage: UNK
     Route: 048
  4. DEXAMETHASONE. [Concomitant]
     Active Substance: DEXAMETHASONE
     Dosage: 40 MG, CYCLIC
     Route: 048
     Dates: start: 20160111, end: 2016
  5. REVLIMID [Concomitant]
     Active Substance: LENALIDOMIDE
     Dosage: 25 MG, CYCLIC
     Route: 048
     Dates: start: 20160111, end: 2016
  6. CALCIMAGON D3 [Concomitant]
     Active Substance: CALCIUM\CHOLECALCIFEROL
     Dosage: D
     Route: 048
  7. KYPROLIS [Suspect]
     Active Substance: CARFILZOMIB
     Indication: PLASMA CELL MYELOMA
     Dosage: 60 MG, CYCLIC
     Route: 042
     Dates: start: 20160111, end: 2016

REACTIONS (3)
  - Pneumonitis chemical [Recovering/Resolving]
  - Pancytopenia [Recovering/Resolving]
  - Hypercalcaemia [Unknown]

NARRATIVE: CASE EVENT DATE: 201603
